FAERS Safety Report 7223031-5 (Version None)
Quarter: 2011Q1

REPORT INFORMATION
  Report Type: 
  Country: None (occurrence: None)
  Receive Date: 20110112
  Receipt Date: 20110106
  Transmission Date: 20110831
  Serious: Yes (Death, Life-Threatening, Disabling)
  Sender: FDA-Public Use
  Company Number: US-RB-020372-11

PATIENT
  Sex: Male

DRUGS (3)
  1. SUBOXONE [Suspect]
     Indication: POLYSUBSTANCE DEPENDENCE
     Route: 065
  2. QUETIAPINE TABLET [Suspect]
     Indication: BIPOLAR I DISORDER
     Dosage: 300 MG AT NIGHT
     Route: 048
     Dates: start: 20090703
  3. WELLBUTRIN SR [Suspect]
     Indication: BIPOLAR I DISORDER
     Route: 048
     Dates: start: 20090909

REACTIONS (1)
  - DEATH [None]
